FAERS Safety Report 18947572 (Version 2)
Quarter: 2021Q2

REPORT INFORMATION
  Report Type: Spontaneous
  Country: IN (occurrence: IN)
  Receive Date: 20210226
  Receipt Date: 20210624
  Transmission Date: 20210717
  Serious: Yes (Other)
  Sender: FDA-Public Use
  Company Number: IN-PFIZER INC-2021137125

PATIENT
  Age: 65 Year
  Sex: Female

DRUGS (2)
  1. PALBACE [Suspect]
     Active Substance: PALBOCICLIB
     Indication: BREAST CANCER METASTATIC
     Dosage: 125 MG, CYCLIC (DAY 1? DAY 21, EVERY 28 DAYS)
     Route: 048
     Dates: start: 20201207
  2. PALBACE [Suspect]
     Active Substance: PALBOCICLIB
     Dosage: 125 MG, CYCLIC (DAY 1? DAY 21, EVERY 28 DAYS)
     Route: 048
     Dates: start: 20201210

REACTIONS (8)
  - Asthenia [Unknown]
  - Vomiting [Unknown]
  - Urinary tract infection [Unknown]
  - Acute kidney injury [Unknown]
  - Renal disorder [Unknown]
  - Renal impairment [Unknown]
  - Pyrexia [Unknown]
  - Neoplasm progression [Unknown]

NARRATIVE: CASE EVENT DATE: 20210227
